FAERS Safety Report 8699993 (Version 1)
Quarter: 2012Q4

REPORT INFORMATION
  Report Type: 
  Country: US (occurrence: US)
  Receive Date: 20120829
  Receipt Date: 20120829
  Transmission Date: 20130627
  Serious: Yes (Other)
  Sender: FDA-Public Use
  Company Number: US-ROCHE-1094874

PATIENT
  Sex: Male

DRUGS (4)
  1. XOLAIR [Suspect]
     Indication: ASTHMA
     Route: 065
  2. ADVAIR [Concomitant]
     Dosage: 250*2
  3. SINGULAIR [Concomitant]
  4. NASONEX [Concomitant]
     Dosage: *2

REACTIONS (9)
  - Prostate cancer [Unknown]
  - Chest discomfort [Unknown]
  - Dyspnoea [Unknown]
  - Lacrimation increased [Unknown]
  - Eye pruritus [Unknown]
  - Sneezing [Unknown]
  - Cough [Unknown]
  - Urticaria [Unknown]
  - Rash [Unknown]
